FAERS Safety Report 8966084 (Version 1)
Quarter: 2012Q4

REPORT INFORMATION
  Report Type: 
  Country: IT (occurrence: IT)
  Receive Date: 20121214
  Receipt Date: 20121214
  Transmission Date: 20130627
  Serious: Yes (Other)
  Sender: FDA-Public Use
  Company Number: PHHY2012IT115106

PATIENT
  Age: 46 Year
  Sex: Female

DRUGS (3)
  1. EPIRUBICIN [Suspect]
     Indication: BREAST CANCER
     Dosage: 194 mg, cyclic dose
     Route: 042
     Dates: start: 20121113, end: 20121204
  2. ENDOXAN [Suspect]
     Indication: BREAST CANCER
     Dosage: 970 mg, cyclic dose
     Route: 042
     Dates: start: 20121113, end: 20121204
  3. FLUOROURACILE [Suspect]
     Indication: BREAST CANCER
     Dosage: 970 mg, cyclic dose
     Route: 042
     Dates: start: 20121113, end: 20121204

REACTIONS (3)
  - Neutropenia [Recovered/Resolved]
  - Asthenia [Recovered/Resolved]
  - Leukopenia [Recovered/Resolved]
